FAERS Safety Report 9340472 (Version 1)
Quarter: 2013Q2

REPORT INFORMATION
  Report Type: Report from Study
  Country: JP (occurrence: JP)
  Receive Date: 20130610
  Receipt Date: 20130610
  Transmission Date: 20140414
  Serious: Yes (Death, Other)
  Sender: FDA-Public Use
  Company Number: JP-BAYER-2012-133110

PATIENT
  Age: 66 Year
  Sex: Female
  Weight: 51 kg

DRUGS (20)
  1. NEXAVAR [Suspect]
     Indication: HEPATOCELLULAR CARCINOMA
     Dosage: DAILY DOSE 400 MG
     Route: 048
     Dates: start: 20110706, end: 20110721
  2. NEXAVAR [Suspect]
     Indication: HEPATOCELLULAR CARCINOMA
     Dosage: DAILY DOSE 200 MG
     Route: 048
     Dates: start: 20110916, end: 20110922
  3. NEXAVAR [Suspect]
     Indication: HEPATOCELLULAR CARCINOMA
     Dosage: 200 MG, QOD
     Route: 048
     Dates: start: 20110923, end: 20110930
  4. LOXOPROFEN [Suspect]
     Dosage: DAILY DOSE 60 MG
     Route: 048
     Dates: start: 20110706, end: 20110710
  5. CALONAL [Concomitant]
     Dosage: UNK
     Route: 048
     Dates: start: 20110711, end: 20110713
  6. NAIXAN [Concomitant]
     Dosage: UNK
     Route: 048
     Dates: start: 20110714, end: 20110724
  7. MUCOSTA [Concomitant]
     Dosage: DAILY DOSE 200 MG
     Route: 048
     Dates: start: 20110714, end: 20110724
  8. OXINORM [Concomitant]
     Indication: ANALGESIC THERAPY
     Dosage: UNK
     Route: 048
     Dates: start: 20110721, end: 20110729
  9. KIDMIN [Concomitant]
     Dosage: UNK
     Route: 041
     Dates: start: 20110721, end: 20110724
  10. NEOLAMIN 3B [Concomitant]
     Dosage: 10 ML DAILY
     Route: 042
     Dates: start: 20110721, end: 20110724
  11. GLUCOSE [Concomitant]
     Dosage: 40 ML DAILY
     Route: 042
     Dates: start: 20110721, end: 20110724
  12. RINDERON [Concomitant]
     Dosage: 2 MG DAILY
     Route: 042
     Dates: start: 20110721, end: 20110724
  13. KAYEXALATE [Concomitant]
     Dosage: 30 G, DAILY
     Route: 048
     Dates: start: 20110725, end: 20110729
  14. NATRIX [Concomitant]
     Dosage: 2 DF, DAILY
     Route: 048
     Dates: start: 20110725, end: 20110729
  15. MICARDIS [Concomitant]
     Indication: HYPERTENSION
     Dosage: 80 MG DAILY
     Route: 048
     Dates: start: 20110725, end: 20110729
  16. SOLDEM 1 [Concomitant]
     Indication: RENAL FAILURE
     Dosage: DAILY DOSE 500 ML
     Route: 042
     Dates: start: 20110725, end: 20110729
  17. ADONA [Concomitant]
     Indication: HAEMORRHAGE
     Dosage: 50 MG, DAILY
     Route: 042
     Dates: start: 20110726, end: 20110726
  18. TRANSAMIN [Concomitant]
     Indication: HAEMORRHAGE
     Dosage: 250 MG, DAILY
     Route: 042
     Dates: start: 20110726, end: 20110726
  19. OMEPRAL [Concomitant]
     Indication: DUODENAL ULCER
     Dosage: UNK UNK, BID
     Route: 042
     Dates: start: 20110727, end: 20110727
  20. TAKEPRON [Concomitant]
     Indication: DUODENAL ULCER
     Dosage: DAILY DOSE 30 MG
     Route: 048
     Dates: start: 20110728, end: 20110729

REACTIONS (15)
  - Hepatocellular carcinoma [Fatal]
  - General physical health deterioration [Fatal]
  - Metastases to lung [Not Recovered/Not Resolved]
  - Pleural effusion [Not Recovered/Not Resolved]
  - Hepatic lesion [Not Recovered/Not Resolved]
  - Gastric mucosal lesion [None]
  - Duodenal ulcer [None]
  - Haematemesis [Recovered/Resolved]
  - Ascites [Not Recovered/Not Resolved]
  - Melaena [None]
  - Pyrexia [Recovered/Resolved]
  - Abdominal pain lower [Recovered/Resolved]
  - Malaise [Recovered/Resolved]
  - Blood potassium increased [Recovered/Resolved]
  - Dyspnoea [Recovered/Resolved]
